FAERS Safety Report 4776356-7 (Version None)
Quarter: 2005Q3

REPORT INFORMATION
  Report Type: 
  Country: None (occurrence: None)
  Receive Date: 20050921
  Receipt Date: 20050913
  Transmission Date: 20060218
  Serious: No
  Sender: FDA-Public Use
  Company Number: EWC050343290

PATIENT
  Age: 61 Year
  Sex: Female

DRUGS (2)
  1. CYMBALTA [Suspect]
     Indication: FIBROMYALGIA
     Dosage: 60 MG/1 DAY
     Dates: start: 20050120, end: 20050121
  2. CYMBALTA [Suspect]
     Indication: MAJOR DEPRESSION
     Dosage: 60 MG/1 DAY
     Dates: start: 20050120, end: 20050121

REACTIONS (3)
  - ASTHENIA [None]
  - ORAL INTAKE REDUCED [None]
  - VOMITING [None]
